FAERS Safety Report 4892074-9 (Version None)
Quarter: 2006Q1

REPORT INFORMATION
  Report Type: 
  Country: None (occurrence: None)
  Receive Date: 20060126
  Receipt Date: 20060117
  Transmission Date: 20060701
  Serious: Yes (Hospitalization)
  Sender: FDA-Public Use
  Company Number: 2006AP00320

PATIENT
  Age: 23543 Day
  Sex: Male

DRUGS (6)
  1. SEROQUEL [Suspect]
     Route: 048
     Dates: start: 20051105, end: 20051107
  2. VALPROATE SODIUM [Concomitant]
  3. IRBESARTAN [Concomitant]
  4. GLUCOSAMINE NOS [Concomitant]
     Indication: ARTHRITIS
  5. SERETIDE 250/25 MDI [Concomitant]
  6. THIAMINE [Concomitant]

REACTIONS (6)
  - CIRCULATORY COLLAPSE [None]
  - CONFUSIONAL STATE [None]
  - CONVULSION [None]
  - FALL [None]
  - HYPOTENSION [None]
  - TACHYCARDIA [None]
